FAERS Safety Report 4733526-1 (Version None)
Quarter: 2005Q3

REPORT INFORMATION
  Report Type: 
  Country: None (occurrence: None)
  Receive Date: 20050729
  Receipt Date: 20050718
  Transmission Date: 20060218
  Serious: Yes (Death)
  Sender: FDA-Public Use
  Company Number: 430011E05GBR

PATIENT

DRUGS (2)
  1. NOVANTRONE [Suspect]
  2. CYTARABINE [Concomitant]

REACTIONS (1)
  - CEREBRAL HAEMORRHAGE [None]
